FAERS Safety Report 21650667 (Version 1)
Quarter: 2022Q4

REPORT INFORMATION
  Report Type: Spontaneous
  Country: US (occurrence: None)
  Receive Date: 20221123
  Receipt Date: 20221123
  Transmission Date: 20230113
  Serious: Yes (Hospitalization)
  Sender: FDA-Public Use
  Company Number: None

PATIENT
  Age: 65 Year
  Sex: Male

DRUGS (10)
  1. TACROLIMUS [Suspect]
     Active Substance: TACROLIMUS
     Indication: Liver transplant
     Dosage: 1 MG  ORAL?TAKE 4 CAPSULES BY MOUTH EVERY 12 HOURS (TAKE WITH 0.5MG CAPSULES FOR TOTAL DOSE OF 4.5 M
     Route: 048
     Dates: start: 20220831
  2. ARANESP [Concomitant]
  3. ASPIRIN [Concomitant]
  4. FUROSEMIDE [Concomitant]
  5. MAGNESIUM [Concomitant]
  6. MULTIVITAMIN [Concomitant]
  7. MYCOPHENOLATE [Concomitant]
  8. NIFEDIPINE [Concomitant]
  9. VITAMIN B-1 [Concomitant]
  10. VITAMIN D [Concomitant]

REACTIONS (2)
  - Pneumonia [None]
  - Infection [None]

NARRATIVE: CASE EVENT DATE: 20221107
